FAERS Safety Report 7907105-9 (Version None)
Quarter: 2011Q4

REPORT INFORMATION
  Report Type: 
  Country: None (occurrence: None)
  Receive Date: 20111110
  Receipt Date: 20110505
  Transmission Date: 20120403
  Serious: No
  Sender: FDA-Public Use
  Company Number: US-ASTRAZENECA-2011SE26911

PATIENT
  Sex: Female

DRUGS (2)
  1. LISINOPRIL [Suspect]
     Route: 048
     Dates: start: 20110401
  2. BENICAR [Suspect]

REACTIONS (4)
  - SLEEP APNOEA SYNDROME [None]
  - FATIGUE [None]
  - CHEST DISCOMFORT [None]
  - COUGH [None]
